FAERS Safety Report 24030793 (Version 1)
Quarter: 2024Q2

REPORT INFORMATION
  Report Type: Spontaneous
  Country: CN (occurrence: CN)
  Receive Date: 20240628
  Receipt Date: 20240628
  Transmission Date: 20240716
  Serious: Yes (Other)
  Sender: FDA-Public Use
  Company Number: CN-JNJFOC-20240660735

PATIENT

DRUGS (1)
  1. SIRTURO [Suspect]
     Active Substance: BEDAQUILINE FUMARATE
     Indication: Product used for unknown indication
     Route: 065

REACTIONS (6)
  - Electrocardiogram QT interval abnormal [Unknown]
  - Neuropathy peripheral [Unknown]
  - Adverse event [Unknown]
  - Hepatic function abnormal [Unknown]
  - Dizziness [Unknown]
  - Headache [Unknown]
